FAERS Safety Report 16905389 (Version 1)
Quarter: 2019Q4

REPORT INFORMATION
  Report Type: Spontaneous
  Country: US (occurrence: US)
  Receive Date: 20191010
  Receipt Date: 20191010
  Transmission Date: 20200122
  Serious: Yes (Hospitalization, Other)
  Sender: FDA-Public Use
  Company Number: US-SAGENT PHARMACEUTICALS-2019SAG001994

PATIENT

DRUGS (5)
  1. KETAMINE [Interacting]
     Active Substance: KETAMINE
     Indication: MIGRAINE
     Dosage: UP TO 45 MG/HOUR
     Route: 042
  2. PROMETHAZINE [Interacting]
     Active Substance: PROMETHAZINE HYDROCHLORIDE
     Indication: MIGRAINE
  3. VALPROATE [Interacting]
     Active Substance: VALPROIC ACID
     Indication: MIGRAINE
     Dosage: 500 MG, UNK
  4. DIHYDROERGOTAMINE MESYLATE. [Suspect]
     Active Substance: DIHYDROERGOTAMINE MESYLATE
     Indication: MIGRAINE
     Dosage: 0.25 MG, UNK
     Route: 042
  5. METHYLPREDNISOLONE. [Interacting]
     Active Substance: METHYLPREDNISOLONE
     Indication: MIGRAINE

REACTIONS (3)
  - Drug interaction [Recovered/Resolved]
  - Reversible cerebral vasoconstriction syndrome [Recovering/Resolving]
  - Posterior reversible encephalopathy syndrome [Recovering/Resolving]
